FAERS Safety Report 9267942 (Version 2)
Quarter: 2013Q2

REPORT INFORMATION
  Report Type: Report from Study
  Country: JP (occurrence: JP)
  Receive Date: 20130502
  Receipt Date: 20130606
  Transmission Date: 20140414
  Serious: Yes (Death)
  Sender: FDA-Public Use
  Company Number: JP-CELGENEUS-087-50794-13050101

PATIENT
  Age: 70 Year
  Sex: Male

DRUGS (2)
  1. VIDAZA [Suspect]
     Indication: MYELODYSPLASTIC SYNDROME
     Dosage: 75 MILLIGRAM/SQ. METER
     Route: 065
     Dates: start: 20120329, end: 2012
  2. VIDAZA [Suspect]
     Dosage: 60 MILLIGRAM/SQ. METER
     Route: 041
     Dates: start: 2012, end: 2012

REACTIONS (1)
  - Pneumonia [Fatal]
